FAERS Safety Report 18490628 (Version 1)
Quarter: 2020Q4

REPORT INFORMATION
  Report Type: Spontaneous
  Country: US (occurrence: US)
  Receive Date: 20201111
  Receipt Date: 20201111
  Transmission Date: 20210114
  Serious: No
  Sender: FDA-Public Use
  Company Number: US-MYLANLABS-2020M1091115

PATIENT
  Sex: Female
  Weight: 53 kg

DRUGS (1)
  1. ESTRADIOL VAGINAL CREAM USP [Suspect]
     Active Substance: ESTRADIOL
     Indication: ATROPHY
     Dosage: 0.01 MILLIGRAM, BIWEEKLY

REACTIONS (2)
  - Device issue [Unknown]
  - Device difficult to use [Unknown]
